FAERS Safety Report 8608818-6 (Version None)
Quarter: 2012Q3

REPORT INFORMATION
  Report Type: 
  Country: None (occurrence: None)
  Receive Date: 20120821
  Receipt Date: 20120815
  Transmission Date: 20120928
  Serious: Yes (Other)
  Sender: FDA-Public Use
  Company Number: US-PFIZER INC-2011034016

PATIENT
  Age: 46 Year
  Sex: Female
  Weight: 78.46 kg

DRUGS (24)
  1. INDOMETHACIN [Concomitant]
     Indication: ANKYLOSING SPONDYLITIS
     Dosage: 50 MG, 3X/DAY
  2. ASPIRIN [Concomitant]
     Indication: CARDIAC DISORDER
     Dosage: 81MG DAILY
  3. LASIX [Concomitant]
     Indication: OEDEMA DUE TO CARDIAC DISEASE
     Dosage: 40MG DAILY
  4. ENBREL [Concomitant]
     Dosage: UNK
  5. LYRICA [Suspect]
     Indication: FIBROMYALGIA
     Dosage: 75 MG, 2X/DAY
     Dates: start: 20101201, end: 20101201
  6. METOPROLOL [Concomitant]
     Indication: HYPERTENSION
     Dosage: 50 MG, 2X/DAY
  7. INDOMETHACIN [Concomitant]
     Dosage: 50 MG, 2X/DAY
  8. OMEPRAZOLE [Concomitant]
     Dosage: 20 MG DAILY PRN
  9. LOSARTAN [Concomitant]
     Dosage: 50 MG, DAILY
  10. CLOBETASOL [Concomitant]
     Dosage: 0.05 %, QD-BID
  11. ARICEPT [Concomitant]
     Indication: DEMENTIA
     Dosage: 10MG DAILY
  12. ALBUTEROL [Concomitant]
     Dosage: 2 PUFFS OF 4-6 PRN
  13. METHOTREXATE [Concomitant]
     Dosage: 15 MG, WEEKLY
  14. LYRICA [Suspect]
     Dosage: 75 MG, 3X/DAY
     Dates: start: 20101201
  15. TRIAMCINOLONE [Concomitant]
     Dosage: 0.1 MG, 2X/DAY
  16. ULTRAM ER [Concomitant]
     Indication: PAIN
     Dosage: 100 MG, 3X/DAY
  17. FOLIC ACID [Concomitant]
     Dosage: 1 MG, DAILY
  18. VITAMIN D [Concomitant]
     Dosage: 2000 DAILY
  19. PREDNISONE [Concomitant]
     Dosage: 10 MG, AS DIRECTED
  20. LYRICA [Suspect]
     Dosage: 200 MG, 3X/DAY
     Route: 048
  21. SIMVASTATIN [Concomitant]
     Dosage: 20 MG, QHS
  22. MIRALAX [Concomitant]
     Dosage: 17 G, DAILY
  23. CYCLOBENZAPRINE [Concomitant]
     Dosage: 10 MG, 2X/DAY
  24. KEFLEX [Concomitant]
     Dosage: 500 MG, 3X/DAY
     Route: 048

REACTIONS (2)
  - WEIGHT INCREASED [None]
  - WEIGHT DECREASED [None]
